FAERS Safety Report 5525382-9 (Version None)
Quarter: 2007Q4

REPORT INFORMATION
  Report Type: 
  Country: None (occurrence: None)
  Receive Date: 20071120
  Receipt Date: 20071120
  Transmission Date: 20080405
  Serious: No
  Sender: FDA-Public Use
  Company Number: None

PATIENT
  Sex: Male
  Weight: 52.1637 kg

DRUGS (2)
  1. ISOTRETINOIN [Suspect]
     Indication: ACNE
     Dosage: 30MG 2X DAY PO
     Route: 048
     Dates: start: 19950201, end: 19950505
  2. ISOTRETINOIN [Suspect]
     Indication: ACNE
     Dosage: 30MG 2X DAY PO
     Route: 048
     Dates: start: 20050301, end: 20050501

REACTIONS (2)
  - ALOPECIA [None]
  - HERPES SIMPLEX [None]
